FAERS Safety Report 23588869 (Version 1)
Quarter: 2024Q1

REPORT INFORMATION
  Report Type: Spontaneous
  Country: FR (occurrence: FR)
  Receive Date: 20240303
  Receipt Date: 20240303
  Transmission Date: 20240410
  Serious: Yes (Hospitalization)
  Sender: FDA-Public Use
  Company Number: FR-AFSSAPS-CF2024000093

PATIENT
  Age: 55 Year
  Sex: Female
  Weight: 81 kg

DRUGS (4)
  1. BROMAZEPAM [Suspect]
     Active Substance: BROMAZEPAM
     Indication: Anxiety
     Dosage: 6 MILLIGRAM (25 COMPRIM?S)
     Route: 048
     Dates: start: 20240209, end: 20240209
  2. ZOPICLONE [Suspect]
     Active Substance: ZOPICLONE
     Indication: Sleep disorder
     Dosage: 7.5 MILLIGRAM (45 TABLET)
     Route: 048
     Dates: start: 20240209, end: 20240209
  3. LAMOTRIGINE [Suspect]
     Active Substance: LAMOTRIGINE
     Indication: Product used for unknown indication
     Dosage: UNK (16 TABLETS)
     Route: 048
     Dates: start: 20240209, end: 20240209
  4. PIROXICAM [Concomitant]
     Active Substance: PIROXICAM
     Indication: Analgesic intervention supportive therapy
     Dosage: UNK (14 TABLETS)
     Route: 048
     Dates: start: 20240209, end: 20240209

REACTIONS (4)
  - Confusional state [Recovered/Resolved]
  - Somnolence [Recovered/Resolved]
  - Disorientation [Recovered/Resolved]
  - Toxicity to various agents [Recovered/Resolved]

NARRATIVE: CASE EVENT DATE: 20240209
